FAERS Safety Report 6941315-2 (Version None)
Quarter: 2010Q3

REPORT INFORMATION
  Report Type: 
  Country: None (occurrence: None)
  Receive Date: 20100825
  Receipt Date: 20100817
  Transmission Date: 20110219
  Serious: Yes (Hospitalization)
  Sender: FDA-Public Use
  Company Number: US-SHIRE-ALL1-2010-04337

PATIENT

DRUGS (1)
  1. FOSRENOL [Suspect]
     Dosage: 1000 MG, WITH MEALS
     Route: 048

REACTIONS (1)
  - CHEST PAIN [None]
